FAERS Safety Report 14756690 (Version 4)
Quarter: 2018Q2

REPORT INFORMATION
  Report Type: Spontaneous
  Country: US (occurrence: US)
  Receive Date: 20180413
  Receipt Date: 20180613
  Transmission Date: 20180711
  Serious: No
  Sender: FDA-Public Use
  Company Number: US-VERTEX PHARMACEUTICALS-2018-002471

PATIENT
  Age: 26 Year
  Sex: Female

DRUGS (13)
  1. AZITHROMYCIN ANHYDROUS. [Concomitant]
     Active Substance: AZITHROMYCIN ANHYDROUS
     Dosage: 1 DF ON MON, WED AND FRI
     Route: 048
     Dates: start: 20150512
  2. PROAIR HFA [Concomitant]
     Active Substance: ALBUTEROL SULFATE
     Dosage: INHALE 2 PUFFS EVERY 4-6 HRS
     Route: 055
     Dates: start: 20170308
  3. SCANDISHAKE MIX [Concomitant]
     Active Substance: DIETARY SUPPLEMENT
     Dosage: MIX 1 PACKET IN 8 OUNCES WHOLE MILK. DRINK 2-3 PER DAY
     Route: 048
     Dates: start: 20170918
  4. PULMOZYME [Concomitant]
     Active Substance: DORNASE ALFA
     Dosage: INHALE 1 VIAL BY MOUTH, QD
     Route: 055
     Dates: start: 20150202
  5. COMPLETE MULTI VIT [Concomitant]
     Active Substance: VITAMINS
     Dosage: 1 DOSAGE FORM, BID
     Route: 048
     Dates: start: 20170124
  6. ALBUTEROL SULFATE. [Concomitant]
     Active Substance: ALBUTEROL SULFATE
     Dosage: 1 VIAL EVERY 4-6 HRS, PRN
     Route: 055
     Dates: start: 20170619
  7. PULMOSAL [Concomitant]
     Dosage: 1 UNIT DOSE, BID
     Route: 055
     Dates: start: 20160414
  8. PRILOSEC [Concomitant]
     Active Substance: OMEPRAZOLE MAGNESIUM
     Dosage: 1 DOSAGE FORM, BID
     Route: 048
     Dates: start: 20150202
  9. VITAMIN D3 [Concomitant]
     Active Substance: CHOLECALCIFEROL
     Dosage: 1 CAPSULE TWO TIMES EACH WEEK
     Route: 048
     Dates: start: 20171206
  10. PANCREAZE                          /00150201/ [Concomitant]
     Dosage: 2-3 WITH MEALS AND 1-2 WITH SNACKS
     Route: 048
     Dates: start: 20170124
  11. SYMDEKO [Suspect]
     Active Substance: IVACAFTOR\TEZACAFTOR
     Indication: CYSTIC FIBROSIS
     Dosage: 100MG TEZACAFTOR/150MG IVACAFTOR AM; 150MG IVACAFTOR PM
     Route: 048
     Dates: start: 20180404
  12. ADVAIR HFA [Concomitant]
     Active Substance: FLUTICASONE PROPIONATE\SALMETEROL XINAFOATE
     Dosage: INHALE 2 PUFFS BID
     Route: 055
     Dates: start: 20150202
  13. BASAGLAR [Concomitant]
     Active Substance: INSULIN GLARGINE
     Dosage: INJECT 13 UNITS AT BEDTIME
     Route: 058
     Dates: start: 20171222

REACTIONS (7)
  - Productive cough [Recovered/Resolved]
  - Asthenia [Not Recovered/Not Resolved]
  - Dizziness [Recovered/Resolved]
  - Headache [Not Recovered/Not Resolved]
  - Blood glucose decreased [Recovered/Resolved]
  - Nasopharyngitis [Not Recovered/Not Resolved]
  - Fatigue [Not Recovered/Not Resolved]

NARRATIVE: CASE EVENT DATE: 201804
